FAERS Safety Report 23967438 (Version 1)
Quarter: 2024Q2

REPORT INFORMATION
  Report Type: Other
  Country: KR (occurrence: KR)
  Receive Date: 20240612
  Receipt Date: 20240612
  Transmission Date: 20240716
  Serious: Yes (Hospitalization)
  Sender: FDA-Public Use
  Company Number: KR-B.Braun Medical Inc.-2158061

PATIENT
  Age: 30 Year
  Sex: Female

DRUGS (4)
  1. DEXTROSE\MAGNESIUM SULFATE [Suspect]
     Active Substance: DEXTROSE\MAGNESIUM SULFATE
     Indication: Pre-eclampsia
  2. LEVETIRACETAM [Suspect]
     Active Substance: LEVETIRACETAM
  3. 50% Dextrose [Concomitant]
  4. LORAZEPAM [Suspect]
     Active Substance: LORAZEPAM

REACTIONS (2)
  - Drug ineffective [Unknown]
  - Maternal exposure during pregnancy [Unknown]
